FAERS Safety Report 17598946 (Version 5)
Quarter: 2021Q1

REPORT INFORMATION
  Report Type: Report from Study
  Country: ZA (occurrence: ZA)
  Receive Date: 20200330
  Receipt Date: 20210312
  Transmission Date: 20210419
  Serious: Yes (Hospitalization, Other)
  Sender: FDA-Public Use
  Company Number: NVSC2020ZA086912

PATIENT
  Sex: Female

DRUGS (6)
  1. CHLOROQUINE. [Concomitant]
     Active Substance: CHLOROQUINE
     Indication: PRODUCT USED FOR UNKNOWN INDICATION
     Dosage: 200 MG
     Route: 065
     Dates: start: 2015
  2. ELTROXIN [Concomitant]
     Active Substance: LEVOTHYROXINE
     Indication: HYPOTHYROIDISM
     Dosage: UNK
     Route: 065
  3. TEGRETOL [Suspect]
     Active Substance: CARBAMAZEPINE
     Indication: BECKER^S MUSCULAR DYSTROPHY
     Dosage: UNK
     Route: 065
  4. COSENTYX [Suspect]
     Active Substance: SECUKINUMAB
     Indication: PRODUCT USED FOR UNKNOWN INDICATION
     Dosage: UNK
     Route: 065
  5. NEXIAM [Concomitant]
     Active Substance: ESOMEPRAZOLE
     Indication: GASTROOESOPHAGEAL REFLUX DISEASE
     Dosage: UNK
     Route: 065
  6. METHOTREXATE. [Concomitant]
     Active Substance: METHOTREXATE
     Indication: PRODUCT USED FOR UNKNOWN INDICATION
     Dosage: 20 MG
     Route: 065
     Dates: start: 2015

REACTIONS (11)
  - Bone marrow oedema [Unknown]
  - Muscle twitching [Unknown]
  - Dysphemia [Unknown]
  - Back pain [Unknown]
  - Product use in unapproved indication [Unknown]
  - Seizure [Unknown]
  - Dysarthria [Unknown]
  - Mental disorder [Unknown]
  - Intervertebral disc degeneration [Unknown]
  - Intervertebral disc annular tear [Unknown]
  - Periarticular disorder [Unknown]
